FAERS Safety Report 5065084-9 (Version None)
Quarter: 2006Q3

REPORT INFORMATION
  Report Type: 
  Country: None (occurrence: None)
  Receive Date: 20060706
  Receipt Date: 20060330
  Transmission Date: 20061208
  Serious: No
  Sender: FDA-Public Use
  Company Number: 200612002BWH

PATIENT
  Age: 59 Year
  Sex: Male

DRUGS (6)
  1. LEVITRA [Suspect]
     Indication: ERECTILE DYSFUNCTION
     Dosage: 20 MG, QD, ORAL
     Route: 048
     Dates: start: 20060327
  2. LEVITRA [Suspect]
     Indication: ERECTILE DYSFUNCTION
     Dosage: 20 MG, QD, ORAL
     Route: 048
     Dates: start: 20060328
  3. LEVITRA [Suspect]
     Indication: ERECTILE DYSFUNCTION
     Dosage: 20 MG, QD, ORAL
     Route: 048
     Dates: start: 20060329
  4. LEVITRA [Suspect]
     Indication: ERECTILE DYSFUNCTION
     Dosage: 20 MG, QD, ORAL
     Route: 048
     Dates: start: 20060330
  5. ORAL DIABETIC MEDICATION [Concomitant]
  6. INSULIN [Concomitant]

REACTIONS (1)
  - ERECTILE DYSFUNCTION [None]
